FAERS Safety Report 13365337 (Version 1)
Quarter: 2017Q1

REPORT INFORMATION
  Report Type: Spontaneous
  Country: US (occurrence: US)
  Receive Date: 20170323
  Receipt Date: 20170323
  Transmission Date: 20170429
  Serious: No
  Sender: FDA-Public Use
  Company Number: US-WARNER CHILCOTT-2017-000051

PATIENT
  Age: 90 Year
  Sex: Female
  Weight: 40.82 kg

DRUGS (3)
  1. ANTIBIOTICS [Concomitant]
     Active Substance: UNSPECIFIED INGREDIENT
     Indication: URINARY TRACT INFECTION
     Dosage: UNK
  2. ESTRACE [Suspect]
     Active Substance: ESTRADIOL
     Indication: URETHRAL DISORDER
     Dosage: ONE DOT APPLIED WITH FINGER TO AREA BETWEEN URETHRA AND ANUS
     Route: 061
     Dates: start: 20161101
  3. AMLODIPINE BESYLATE. [Concomitant]
     Active Substance: AMLODIPINE BESYLATE
     Indication: HYPERTENSION
     Dosage: 2.5 MG, QD

REACTIONS (3)
  - Product use issue [Unknown]
  - Drug prescribing error [Unknown]
  - Wrong technique in product usage process [Unknown]
